FAERS Safety Report 4730335-4 (Version None)
Quarter: 2005Q3

REPORT INFORMATION
  Report Type: 
  Country: None (occurrence: None)
  Receive Date: 20050725
  Receipt Date: 20050412
  Transmission Date: 20060218
  Serious: No
  Sender: FDA-Public Use
  Company Number: USA050495475

PATIENT
  Age: 65 Year
  Sex: Female

DRUGS (2)
  1. STRATTERA [Suspect]
     Dosage: 50 MG/1 DAY
     Dates: start: 20050114
  2. PRILOSEC (OMEPRAZOLE RATIOPHARM) [Concomitant]

REACTIONS (3)
  - ABDOMINAL DISTENSION [None]
  - CONSTIPATION [None]
  - WEIGHT INCREASED [None]
